FAERS Safety Report 13260608 (Version 1)
Quarter: 2017Q1

REPORT INFORMATION
  Report Type: Spontaneous
  Country: DE (occurrence: DE)
  Receive Date: 20170222
  Receipt Date: 20170222
  Transmission Date: 20170428
  Serious: Yes (Hospitalization, Other)
  Sender: FDA-Public Use
  Company Number: DE-ASTRAZENECA-2016SF17157

PATIENT
  Age: 92 Year
  Sex: Female

DRUGS (11)
  1. PEPSINWEIN [Concomitant]
  2. ATACAND [Suspect]
     Active Substance: CANDESARTAN CILEXETIL
     Route: 048
     Dates: end: 201409
  3. VALORON N [Suspect]
     Active Substance: NALOXONE HYDROCHLORIDE\TILIDINE HYDROCHLORIDE
     Indication: PAIN
     Dosage: 50/4 MG
     Route: 065
     Dates: start: 2003
  4. SORTIS [Suspect]
     Active Substance: ATORVASTATIN
     Dosage: 20, 1X/DAY
     Route: 065
     Dates: end: 201409
  5. VITAMIN B12 [Concomitant]
     Active Substance: CYANOCOBALAMIN
  6. VALORON N [Suspect]
     Active Substance: NALOXONE HYDROCHLORIDE\TILIDINE HYDROCHLORIDE
     Indication: PAIN
     Dosage: 50/4 MG
     Dates: start: 20161028
  7. VALORON [Concomitant]
     Active Substance: TILIDINE HYDROCHLORIDE
  8. PANTOZOL [Concomitant]
     Active Substance: PANTOPRAZOLE SODIUM
  9. QUANTALAN [Concomitant]
     Active Substance: CHOLESTYRAMINE
  10. VITAMIN B COMPLEX [Concomitant]
     Active Substance: CYANOCOBALAMIN\DEXPANTHENOL\NIACINAMIDE\PYRIDOXINE HYDROCHLORIDE\RIBOFLAVIN 5^-PHOSPHATE SODIUM\THIAMINE HYDROCHLORIDE\VITAMIN B COMPLEX
  11. STANGYL [Concomitant]
     Active Substance: TRIMIPRAMINE MALEATE

REACTIONS (16)
  - Pain in extremity [Unknown]
  - Pruritus [Unknown]
  - Renal impairment [Unknown]
  - Pain [Unknown]
  - Headache [Unknown]
  - Cachexia [Unknown]
  - Sleep disorder [Unknown]
  - Reflux gastritis [Unknown]
  - Weight decreased [Unknown]
  - Hiatus hernia [Unknown]
  - Disease recurrence [Unknown]
  - Dizziness [Unknown]
  - Somnolence [Unknown]
  - Fatigue [Unknown]
  - Diverticulum intestinal [Unknown]
  - Carotid artery stenosis [Unknown]
